FAERS Safety Report 25192367 (Version 1)
Quarter: 2025Q2

REPORT INFORMATION
  Report Type: Spontaneous
  Country: GB (occurrence: GB)
  Receive Date: 20250414
  Receipt Date: 20250414
  Transmission Date: 20250717
  Serious: Yes (Other)
  Sender: PROVEPHARM
  Company Number: GB-Provepharm-2174816

PATIENT
  Age: 10 Year
  Sex: Male

DRUGS (3)
  1. PROVAYBLUE [Suspect]
     Active Substance: METHYLENE BLUE
     Indication: X-ray
     Dates: start: 20240613, end: 20240613
  2. PROVAYBLUE [Suspect]
     Active Substance: METHYLENE BLUE
     Indication: Lymphatic mapping
  3. UNSPECIFIED INGREDIENT [Suspect]
     Active Substance: UNSPECIFIED INGREDIENT

REACTIONS (4)
  - Lymphangitis [Recovered/Resolved]
  - Incorrect route of product administration [Unknown]
  - Product use in unapproved indication [Unknown]
  - Localised oedema [Recovered/Resolved]

NARRATIVE: CASE EVENT DATE: 20240613
